FAERS Safety Report 21508772 (Version 5)
Quarter: 2023Q1

REPORT INFORMATION
  Report Type: Spontaneous
  Country: US (occurrence: US)
  Receive Date: 20221026
  Receipt Date: 20230210
  Transmission Date: 20230417
  Serious: Yes (Other)
  Sender: FDA-Public Use
  Company Number: US-BIOVITRUM-2022US12000

PATIENT
  Age: 46 Year
  Sex: Female

DRUGS (7)
  1. KINERET [Suspect]
     Active Substance: ANAKINRA
     Indication: Rheumatoid arthritis
     Dates: start: 20221006
  2. KINERET [Suspect]
     Active Substance: ANAKINRA
     Indication: Keratitis
     Dates: start: 20221006
  3. KINERET [Suspect]
     Active Substance: ANAKINRA
     Indication: Sjogren^s syndrome
  4. REMICADE [Concomitant]
     Active Substance: INFLIXIMAB
  5. METHOTREXATE [Concomitant]
     Active Substance: METHOTREXATE
  6. CETIRIZINE [Concomitant]
     Active Substance: CETIRIZINE HYDROCHLORIDE
  7. ONDANSETRON [Concomitant]
     Active Substance: ONDANSETRON

REACTIONS (18)
  - Cardiac flutter [Unknown]
  - Kidney infection [Unknown]
  - Fatigue [Unknown]
  - Pain [Unknown]
  - Arthralgia [Unknown]
  - Influenza like illness [Unknown]
  - Abdominal pain upper [Unknown]
  - Muscle spasms [Unknown]
  - Urinary tract infection [Unknown]
  - Proteinuria [Unknown]
  - Chills [Unknown]
  - Injection site pain [Unknown]
  - Injection site pruritus [Unknown]
  - Injection site rash [Unknown]
  - Injection site inflammation [Unknown]
  - Injection site erythema [Unknown]
  - Product dose omission issue [Unknown]
  - Off label use [Not Recovered/Not Resolved]

NARRATIVE: CASE EVENT DATE: 20221006
